FAERS Safety Report 6404785-4 (Version None)
Quarter: 2009Q4

REPORT INFORMATION
  Report Type: 
  Country: None (occurrence: None)
  Receive Date: 20091016
  Receipt Date: 20091006
  Transmission Date: 20100525
  Serious: Yes (Other)
  Sender: FDA-Public Use
  Company Number: PHHY2009ZA43083

PATIENT
  Sex: Male

DRUGS (3)
  1. RITALIN [Suspect]
     Dosage: UNK
  2. LYRICA [Concomitant]
     Dosage: UNK
  3. ARAVA [Concomitant]
     Dosage: UNK

REACTIONS (3)
  - ANGIOEDEMA [None]
  - FEELING ABNORMAL [None]
  - OEDEMA PERIPHERAL [None]
